FAERS Safety Report 5812349-6 (Version None)
Quarter: 2008Q3

REPORT INFORMATION
  Report Type: 
  Country: None (occurrence: None)
  Receive Date: 20080716
  Receipt Date: 20080708
  Transmission Date: 20090109
  Serious: Yes (Other)
  Sender: FDA-Public Use
  Company Number: AU-PFIZER INC-2008027571

PATIENT
  Sex: Male

DRUGS (9)
  1. ZOLOFT [Suspect]
     Indication: DEPRESSION
     Route: 048
  2. ZOLOFT [Suspect]
     Indication: ANXIETY
  3. ALL OTHER THERAPEUTIC PRODUCTS [Concomitant]
  4. IRBESARTAN [Concomitant]
     Route: 048
  5. TENOFOVIR [Concomitant]
     Route: 048
  6. MOBIC [Concomitant]
  7. RITONAVIR [Concomitant]
  8. ATAZANAVIR [Concomitant]
  9. NANDROLONE DECANOATE [Concomitant]
     Route: 030

REACTIONS (5)
  - LACERATION [None]
  - PHYSICAL ASSAULT [None]
  - SLEEP DISORDER [None]
  - SLEEP TERROR [None]
  - SOMNAMBULISM [None]
